FAERS Safety Report 22391481 (Version 2)
Quarter: 2023Q2

REPORT INFORMATION
  Report Type: Spontaneous
  Country: US (occurrence: US)
  Receive Date: 20230601
  Receipt Date: 20230613
  Transmission Date: 20230721
  Serious: Yes (Life-Threatening)
  Sender: FDA-Public Use
  Company Number: US-TEVA-2023-US-2891094

PATIENT
  Age: 59 Year
  Sex: Male

DRUGS (2)
  1. IBUPROFEN [Suspect]
     Active Substance: IBUPROFEN
     Indication: Intentional overdose
     Dosage: 100 G
     Route: 048
  2. ACETAMINOPHEN [Suspect]
     Active Substance: ACETAMINOPHEN
     Indication: Intentional overdose
     Dosage: 100 G
     Route: 048

REACTIONS (6)
  - Liver injury [Recovered/Resolved]
  - Encephalopathy [Unknown]
  - Acidosis [Unknown]
  - Intentional product misuse [Unknown]
  - Intentional overdose [Unknown]
  - Toxicity to various agents [Unknown]
